FAERS Safety Report 15680534 (Version 1)
Quarter: 2018Q4

REPORT INFORMATION
  Report Type: Spontaneous
  Country: US (occurrence: US)
  Receive Date: 20181202
  Receipt Date: 20181202
  Transmission Date: 20190205
  Serious: Yes (Other)
  Sender: FDA-Public Use
  Company Number: None

PATIENT
  Age: 51 Year
  Sex: Female

DRUGS (1)
  1. CYMBALTA [Suspect]
     Active Substance: DULOXETINE HYDROCHLORIDE
     Indication: ANXIETY
     Dosage: ?          QUANTITY:1 CAPSULE(S);?
     Route: 048
     Dates: start: 20090930, end: 20180830

REACTIONS (12)
  - Hallucination, auditory [None]
  - Dyspepsia [None]
  - Hyperhidrosis [None]
  - Fatigue [None]
  - Headache [None]
  - Withdrawal syndrome [None]
  - Lethargy [None]
  - Muscle twitching [None]
  - Sexual dysfunction [None]
  - Dehydration [None]
  - Pain [None]
  - Exercise lack of [None]

NARRATIVE: CASE EVENT DATE: 20180801
